FAERS Safety Report 7111758-5 (Version None)
Quarter: 2010Q4

REPORT INFORMATION
  Report Type: 
  Country: None (occurrence: None)
  Receive Date: 20101118
  Receipt Date: 20101105
  Transmission Date: 20110411
  Serious: Yes (Hospitalization)
  Sender: FDA-Public Use
  Company Number: US-ELI_LILLY_AND_COMPANY-US201009000654

PATIENT
  Sex: Male
  Weight: 88.435 kg

DRUGS (10)
  1. FORTEO [Suspect]
     Indication: OSTEOPOROSIS
     Dosage: 20 UG, DAILY (1/D)
  2. COUMADIN [Concomitant]
  3. LOPRESSOR [Concomitant]
  4. ACTOS [Concomitant]
     Dosage: 45 MG, DAILY (1/D)
  5. ACTOS [Concomitant]
     Dosage: 30 MG, DAILY (1/D)
  6. GLYBURIDE [Concomitant]
  7. CALCIUM [Concomitant]
  8. ZINC [Concomitant]
  9. NPH INSULIN [Concomitant]
     Dosage: UNK, UNK
  10. HUMALOG [Concomitant]
     Dosage: 1 D/F, UNKNOWN

REACTIONS (4)
  - ATRIAL FLUTTER [None]
  - DIABETES MELLITUS [None]
  - FATIGUE [None]
  - TACHYCARDIA [None]
